FAERS Safety Report 8311044-1 (Version None)
Quarter: 2012Q2

REPORT INFORMATION
  Report Type: 
  Country: None (occurrence: None)
  Receive Date: 20120423
  Receipt Date: 20120416
  Transmission Date: 20120825
  Serious: Yes (Other)
  Sender: FDA-Public Use
  Company Number: 2012MA004903

PATIENT
  Age: 29 Year
  Sex: Male

DRUGS (1)
  1. PERMETHRIN [Suspect]
     Indication: ACARODERMATITIS
     Dosage: 1 PCT;X1;TOP
     Route: 061
     Dates: start: 20120411, end: 20120411

REACTIONS (1)
  - DRUG HYPERSENSITIVITY [None]
